FAERS Safety Report 4950859-4 (Version None)
Quarter: 2006Q1

REPORT INFORMATION
  Report Type: 
  Country: None (occurrence: None)
  Receive Date: 20060315
  Receipt Date: 20060302
  Transmission Date: 20060701
  Serious: Yes (Hospitalization)
  Sender: FDA-Public Use
  Company Number: RENA-11615

PATIENT
  Age: 49 Year
  Sex: Female

DRUGS (9)
  1. PHOSBLOCK 250 MG TABLETS [Suspect]
     Indication: HYPERPHOSPHATAEMIA
     Dosage: 2.25 G DAILY PO
     Route: 048
     Dates: start: 20051017, end: 20051109
  2. PRECIPITATED CALCIUM CARBONATE [Concomitant]
  3. CARVEDILOL [Concomitant]
  4. AMLODIPINE BESYLATE [Concomitant]
  5. SIMVASTATIN [Concomitant]
  6. FAMOTIGINE [Concomitant]
  7. DROXIDOPA [Concomitant]
  8. SENNA [Concomitant]
  9. EPOETIN [Concomitant]

REACTIONS (1)
  - GASTRIC ULCER [None]
